FAERS Safety Report 7300805-3 (Version None)
Quarter: 2011Q1

REPORT INFORMATION
  Report Type: 
  Country: None (occurrence: None)
  Receive Date: 20110103
  Receipt Date: 20100604
  Transmission Date: 20110831
  Serious: Yes (Life-Threatening, Hospitalization)
  Sender: FDA-Public Use
  Company Number: US-004555

PATIENT
  Age: 51 Year
  Sex: Male
  Weight: 73 kg

DRUGS (6)
  1. LIDODERM [Concomitant]
  2. GABAPENTIN [Concomitant]
  3. FLONASE [Concomitant]
  4. LOVENOX [Concomitant]
  5. MULTIHANCE [Suspect]
     Indication: NUCLEAR MAGNETIC RESONANCE IMAGING
     Dosage: 15ML ONCE INTRAVENOUS (NOT OTHERWISE SPECIFIED)
     Route: 042
     Dates: start: 20100603, end: 20100603
  6. MULTIHANCE [Suspect]
     Indication: INTERVERTEBRAL DISCITIS
     Dosage: 15ML ONCE INTRAVENOUS (NOT OTHERWISE SPECIFIED)
     Route: 042
     Dates: start: 20100603, end: 20100603

REACTIONS (9)
  - ASPARTATE AMINOTRANSFERASE INCREASED [None]
  - ANAPHYLACTOID REACTION [None]
  - CONVULSION [None]
  - NAUSEA [None]
  - DIARRHOEA [None]
  - DRUG WITHDRAWAL SYNDROME [None]
  - BACK PAIN [None]
  - UNRESPONSIVE TO STIMULI [None]
  - VENTRICULAR FIBRILLATION [None]
